FAERS Safety Report 4300289-3 (Version None)
Quarter: 2004Q1

REPORT INFORMATION
  Report Type: 
  Country: None (occurrence: None)
  Receive Date: 20040218
  Receipt Date: 20040129
  Transmission Date: 20041129
  Serious: Yes (Hospitalization)
  Sender: FDA-Public Use
  Company Number: 200312983BCC

PATIENT
  Age: 80 Year
  Sex: Male
  Weight: 81.6475 kg

DRUGS (2)
  1. ALEVE [Suspect]
     Indication: ARTHRALGIA
     Dosage: ORAL
     Route: 048
  2. NAPROXEN [Suspect]

REACTIONS (7)
  - BARRETT'S OESOPHAGUS [None]
  - COLONIC POLYP [None]
  - DIVERTICULUM [None]
  - HAEMATEMESIS [None]
  - HAEMATURIA [None]
  - HIATUS HERNIA [None]
  - OESOPHAGITIS HAEMORRHAGIC [None]
